FAERS Safety Report 11508104 (Version 1)
Quarter: 2015Q3

REPORT INFORMATION
  Report Type: Spontaneous
  Country: US (occurrence: US)
  Receive Date: 20150903
  Receipt Date: 20150903
  Transmission Date: 20151125
  Serious: No
  Sender: FDA-Public Use
  Company Number: US-ELI_LILLY_AND_COMPANY-US200911003422

PATIENT
  Age: 65 Year
  Sex: Male

DRUGS (5)
  1. HUMALOG MIX75/25 [Suspect]
     Active Substance: INSULIN LISPRO
  2. HUMALOG MIX50/50 [Suspect]
     Active Substance: INSULIN LISPRO
     Dosage: 14 U, EACH EVENING
  3. BYETTA [Concomitant]
     Active Substance: EXENATIDE
     Dosage: 3 U, AS NEEDED
     Dates: start: 200908
  4. HUMALOG MIX50/50 [Suspect]
     Active Substance: INSULIN LISPRO
     Dosage: 16 U, EACH MORNING
  5. HUMALOG MIX50/50 [Suspect]
     Active Substance: INSULIN LISPRO

REACTIONS (3)
  - Drug dispensing error [Recovered/Resolved]
  - Intercepted drug dispensing error [Unknown]
  - Wrong technique in product usage process [Unknown]

NARRATIVE: CASE EVENT DATE: 200910
